FAERS Safety Report 5250276-6 (Version None)
Quarter: 2007Q1

REPORT INFORMATION
  Report Type: 
  Country: None (occurrence: None)
  Receive Date: 20070228
  Receipt Date: 20060315
  Transmission Date: 20070707
  Serious: No
  Sender: FDA-Public Use
  Company Number: US-GLAXOSMITHKLINE-A0597686A

PATIENT
  Age: 65 Year
  Sex: Female

DRUGS (4)
  1. LAMICTAL [Suspect]
     Indication: EPILEPSY
     Route: 048
     Dates: start: 20030101
  2. PNEUMOVAX 23 [Suspect]
     Indication: DRUG USE FOR UNKNOWN INDICATION
     Route: 065
  3. TETANUS VACCINE [Suspect]
  4. DANAZOL [Concomitant]

REACTIONS (4)
  - BLOOD IMMUNOGLOBULIN G DECREASED [None]
  - DRUG INTERACTION [None]
  - IMMUNE SYSTEM DISORDER [None]
  - THERAPEUTIC RESPONSE DECREASED [None]
